FAERS Safety Report 24369734 (Version 1)
Quarter: 2024Q3

REPORT INFORMATION
  Report Type: Report from Study
  Country: US (occurrence: US)
  Receive Date: 20240927
  Receipt Date: 20240927
  Transmission Date: 20241017
  Serious: No
  Sender: ROCHE
  Company Number: US-ROCHE-3479747

PATIENT
  Age: 85 Year
  Sex: Male

DRUGS (6)
  1. LUCENTIS [Suspect]
     Active Substance: RANIBIZUMAB
     Indication: Neovascular age-related macular degeneration
     Dosage: RIGHT EYE.
     Route: 050
     Dates: start: 2021
  2. LUCENTIS [Suspect]
     Active Substance: RANIBIZUMAB
     Indication: Choroidal neovascularisation
     Route: 050
  3. LUCENTIS [Suspect]
     Active Substance: RANIBIZUMAB
     Indication: Dry age-related macular degeneration
     Route: 050
     Dates: start: 20220621, end: 20230620
  4. LUCENTIS [Suspect]
     Active Substance: RANIBIZUMAB
     Route: 050
  5. VABYSMO [Suspect]
     Active Substance: FARICIMAB-SVOA
     Indication: Neovascular age-related macular degeneration
     Route: 065
  6. VABYSMO [Suspect]
     Active Substance: FARICIMAB-SVOA
     Indication: Choroidal neovascularisation

REACTIONS (4)
  - Off label use [Unknown]
  - Fatigue [Unknown]
  - Rhinorrhoea [Unknown]
  - Weight decreased [Unknown]
